FAERS Safety Report 7038219-6 (Version None)
Quarter: 2010Q4

REPORT INFORMATION
  Report Type: 
  Country: None (occurrence: None)
  Receive Date: 20101011
  Receipt Date: 20100928
  Transmission Date: 20110411
  Serious: Yes (Death)
  Sender: FDA-Public Use
  Company Number: US-MYLANLABS-2010S1018183

PATIENT
  Age: 67 Year
  Sex: Male

DRUGS (12)
  1. AMIODARONE [Suspect]
     Indication: CARDIOVASCULAR DISORDER
     Route: 065
  2. MILRINONE [Concomitant]
     Indication: CARDIOVASCULAR DISORDER
     Route: 065
  3. DIGOXIN [Concomitant]
     Indication: CARDIOVASCULAR DISORDER
     Route: 065
  4. LEVOTHYROXINE SODIUM [Concomitant]
     Route: 065
  5. ASPIRIN [Concomitant]
     Indication: CARDIOVASCULAR DISORDER
     Route: 065
  6. LISINOPRIL [Concomitant]
     Indication: CARDIOVASCULAR DISORDER
     Route: 065
  7. CLOPIDOGREL [Concomitant]
     Indication: CARDIOVASCULAR DISORDER
     Route: 065
  8. SIMVASTATIN [Concomitant]
     Indication: CARDIOVASCULAR DISORDER
     Route: 065
  9. ALLOPURINOL [Concomitant]
     Route: 065
  10. FUROSEMIDE [Concomitant]
     Indication: CARDIOVASCULAR DISORDER
     Route: 065
  11. IRON [Concomitant]
     Route: 065
  12. PANTOPRAZOLE [Concomitant]
     Route: 065

REACTIONS (1)
  - MYXOEDEMA COMA [None]
